FAERS Safety Report 19635899 (Version 3)
Quarter: 2021Q3

REPORT INFORMATION
  Report Type: Spontaneous
  Country: US (occurrence: US)
  Receive Date: 20210730
  Receipt Date: 20210915
  Transmission Date: 20211014
  Serious: No
  Sender: FDA-Public Use
  Company Number: US-UNITED THERAPEUTICS-UNT-2021-013990

PATIENT
  Age: 73 Year
  Sex: Female
  Weight: 74.83 kg

DRUGS (3)
  1. TYVASO [Suspect]
     Active Substance: TREPROSTINIL
     Dosage: 60?120 ?G, QID
     Dates: start: 202107
  2. TYVASO [Suspect]
     Active Substance: TREPROSTINIL
     Dosage: 18?54 ?G, QID
     Dates: start: 202107, end: 2021
  3. TYVASO [Suspect]
     Active Substance: TREPROSTINIL
     Indication: PULMONARY ARTERIAL HYPERTENSION
     Dosage: UNK
     Dates: start: 20210714

REACTIONS (9)
  - Nausea [Unknown]
  - Epistaxis [Unknown]
  - Epistaxis [Recovered/Resolved]
  - Photopsia [Unknown]
  - Off label use [Recovered/Resolved]
  - Visual impairment [Unknown]
  - Oxygen saturation decreased [Unknown]
  - Cough [Recovered/Resolved]
  - Dizziness [Recovered/Resolved]

NARRATIVE: CASE EVENT DATE: 2021
